FAERS Safety Report 7940889-2 (Version None)
Quarter: 2011Q4

REPORT INFORMATION
  Report Type: 
  Country: None (occurrence: None)
  Receive Date: 20111114
  Receipt Date: 20110714
  Transmission Date: 20120403
  Serious: Yes (Hospitalization)
  Sender: FDA-Public Use
  Company Number: 1000022204

PATIENT
  Age: 70 Year
  Sex: Female
  Weight: 102.5 kg

DRUGS (3)
  1. SAVELLA [Suspect]
     Indication: FIBROMYALGIA
     Dosage: 12.5 MG (12.5 MG,1 IN 1 D),ORAL ; 25 MG (12.5 MG,2 IN 1 D),ORAL
     Route: 048
     Dates: start: 20101204, end: 20101204
  2. SAVELLA [Suspect]
     Indication: FIBROMYALGIA
     Dosage: 12.5 MG (12.5 MG,1 IN 1 D),ORAL ; 25 MG (12.5 MG,2 IN 1 D),ORAL
     Route: 048
     Dates: start: 20101205, end: 20101206
  3. SAVELLA [Suspect]
     Indication: FIBROMYALGIA
     Dosage: 50 MG (25 MG,2 IN 1 D),ORAL
     Route: 048
     Dates: start: 20101207, end: 20101207

REACTIONS (1)
  - HEART RATE INCREASED [None]
